FAERS Safety Report 24583179 (Version 4)
Quarter: 2025Q1

REPORT INFORMATION
  Report Type: Report from Study
  Country: US (occurrence: US)
  Receive Date: 20241106
  Receipt Date: 20250305
  Transmission Date: 20250409
  Serious: Yes (Hospitalization, Other)
  Sender: TAKEDA
  Company Number: US-TAKEDA-2024TUS091417

PATIENT
  Age: 65 Year
  Sex: Female

DRUGS (5)
  1. TEDUGLUTIDE [Suspect]
     Active Substance: TEDUGLUTIDE
     Indication: Short-bowel syndrome
     Dosage: 0.36 MILLILITER, QD
     Dates: start: 202407
  2. TEDUGLUTIDE [Suspect]
     Active Substance: TEDUGLUTIDE
  3. TEDUGLUTIDE [Suspect]
     Active Substance: TEDUGLUTIDE
  4. TEDUGLUTIDE [Suspect]
     Active Substance: TEDUGLUTIDE
  5. AMINO ACIDS\DEXTROSE\ELECTROLYTES NOS\SOYBEAN OIL [Suspect]
     Active Substance: AMINO ACIDS\DEXTROSE\ELECTROLYTES NOS\SOYBEAN OIL
     Indication: Product used for unknown indication

REACTIONS (15)
  - Abdominal abscess [Unknown]
  - Vascular device infection [Unknown]
  - Haemorrhage [Unknown]
  - Intestinal fistula [Unknown]
  - Joint swelling [Unknown]
  - Weight increased [Unknown]
  - Taste disorder [Unknown]
  - Viral infection [Recovered/Resolved]
  - White blood cell count increased [Unknown]
  - Gout [Unknown]
  - Night sweats [Unknown]
  - Abdominal wall wound [Unknown]
  - Decreased appetite [Unknown]
  - Nausea [Unknown]
  - Abdominal distension [Unknown]

NARRATIVE: CASE EVENT DATE: 20240923
